FAERS Safety Report 15607490 (Version 2)
Quarter: 2018Q4

REPORT INFORMATION
  Report Type: Spontaneous
  Country: US (occurrence: US)
  Receive Date: 20181112
  Receipt Date: 20181116
  Transmission Date: 20190205
  Serious: No
  Sender: FDA-Public Use
  Company Number: PHEH2018US046741

PATIENT
  Sex: Female

DRUGS (1)
  1. TEGRETOL [Suspect]
     Active Substance: CARBAMAZEPINE
     Indication: PRODUCT USED FOR UNKNOWN INDICATION
     Dosage: 200 MG, 6QD
     Route: 065

REACTIONS (7)
  - Pyrexia [Unknown]
  - Nausea [Unknown]
  - Hypersomnia [Unknown]
  - Weight decreased [Unknown]
  - Vomiting [Unknown]
  - Rash [Unknown]
  - Urticaria [Unknown]
